FAERS Safety Report 6532459-8 (Version None)
Quarter: 2010Q1

REPORT INFORMATION
  Report Type: 
  Country: None (occurrence: None)
  Receive Date: 20100111
  Receipt Date: 20091231
  Transmission Date: 20100710
  Serious: Yes (Hospitalization)
  Sender: FDA-Public Use
  Company Number: US-BIOGENIDEC-2008BI025686

PATIENT
  Age: 58 Year
  Sex: Female

DRUGS (3)
  1. TYSABRI [Suspect]
     Indication: MULTIPLE SCLEROSIS
     Route: 042
     Dates: start: 20080628
  2. METHADONE [Concomitant]
     Indication: PAIN
  3. VICODIN [Concomitant]
     Indication: PAIN

REACTIONS (10)
  - ARTHRALGIA [None]
  - BRONCHITIS [None]
  - CHONDROPATHY [None]
  - FATIGUE [None]
  - INFLAMMATION [None]
  - JOINT CREPITATION [None]
  - JOINT INJECTION [None]
  - JOINT LOCK [None]
  - PAIN [None]
  - SLEEP APNOEA SYNDROME [None]
